FAERS Safety Report 8955219 (Version 1)
Quarter: 2012Q4

REPORT INFORMATION
  Report Type: 
  Country: US (occurrence: US)
  Receive Date: 20121210
  Receipt Date: 20121210
  Transmission Date: 20130627
  Serious: No
  Sender: FDA-Public Use
  Company Number: US-PFIZER INC-2012308718

PATIENT
  Age: 52 Year
  Sex: Female
  Weight: 67.57 kg

DRUGS (5)
  1. LYRICA [Suspect]
     Indication: SHOULDER PAIN
     Dosage: 75 mg, 2x/day
     Dates: start: 2012
  2. LYRICA [Suspect]
     Indication: FIBROMYALGIA
     Dosage: 150 mg, 2x/day
     Dates: start: 2012, end: 2012
  3. IBUPROFEN [Suspect]
     Dosage: UNK
  4. HYDROMORPHONE HYDROCHLORIDE [Concomitant]
     Indication: PAIN
     Dosage: 8 mg, daily
  5. OMEPRAZOLE [Concomitant]
     Indication: ACID REFLUX (ESOPHAGEAL)
     Dosage: 20 mg, 2x/day

REACTIONS (3)
  - Drug ineffective [Unknown]
  - Limb discomfort [Unknown]
  - Abdominal distension [Recovered/Resolved]
